FAERS Safety Report 11742212 (Version 1)
Quarter: 2015Q4

REPORT INFORMATION
  Report Type: Spontaneous
  Country: US (occurrence: US)
  Receive Date: 20151116
  Receipt Date: 20151116
  Transmission Date: 20160304
  Serious: No
  Sender: FDA-Public Use
  Company Number: US-ACTELION PHARMACEUTICALS US, INC.-A-NJ2014-104082

PATIENT
  Age: 44 Year
  Sex: Female

DRUGS (5)
  1. SILDENAFIL. [Concomitant]
     Active Substance: SILDENAFIL
  2. COUMADIN [Concomitant]
     Active Substance: WARFARIN SODIUM
  3. ADCIRCA [Concomitant]
     Active Substance: TADALAFIL
  4. REMODULIN [Concomitant]
     Active Substance: TREPROSTINIL
  5. TRACLEER [Suspect]
     Active Substance: BOSENTAN
     Indication: PULMONARY ARTERIAL HYPERTENSION
     Dosage: UNK
     Route: 048

REACTIONS (10)
  - Infusion site scab [Unknown]
  - Pruritus [Unknown]
  - Dry skin [Unknown]
  - Chills [Unknown]
  - Infusion site erythema [Unknown]
  - Infusion site warmth [Unknown]
  - Catheter site inflammation [Unknown]
  - Erythema [Unknown]
  - Pyrexia [Unknown]
  - Blister [Unknown]
